FAERS Safety Report 8740844 (Version 3)
Quarter: 2013Q2

REPORT INFORMATION
  Report Type: Spontaneous
  Country: US (occurrence: US)
  Receive Date: 20120823
  Receipt Date: 20130419
  Transmission Date: 20140414
  Serious: No
  Sender: FDA-Public Use
  Company Number: US-ASTRAZENECA-2012SE57846

PATIENT
  Age: 76 Year
  Sex: Female

DRUGS (20)
  1. NEXIUM [Suspect]
     Route: 048
  2. NEXIUM [Suspect]
     Route: 048
  3. TOPROL XL [Suspect]
     Route: 048
  4. ASPIRIN [Concomitant]
  5. MYCOSTATIN [Concomitant]
  6. BUMEX [Concomitant]
  7. NORCO [Concomitant]
  8. ATIVAN [Concomitant]
  9. VITAMIN E [Concomitant]
  10. PROVENTIL [Concomitant]
     Indication: DYSPNOEA
  11. EXFORGE [Concomitant]
  12. LEVOTHYROID, SYNTHROID [Concomitant]
  13. ADVAIR DISKUS [Concomitant]
  14. NASONEX [Concomitant]
  15. MIRALAX [Concomitant]
     Indication: CONSTIPATION
  16. CALCIUM CARB-D3-MAG CMB11-ZINC [Concomitant]
  17. GINKGO BILOBA [Concomitant]
  18. CLARITIN [Concomitant]
  19. LONGS VITAMIN D [Concomitant]
  20. VITAMIN C [Concomitant]

REACTIONS (21)
  - Back pain [Unknown]
  - Hypothyroidism [Unknown]
  - Essential hypertension [Unknown]
  - Chronic obstructive pulmonary disease [Unknown]
  - Gastrooesophageal reflux disease [Unknown]
  - Ligament sprain [Unknown]
  - Neuropathy peripheral [Unknown]
  - Restless legs syndrome [Unknown]
  - Haemorrhoids [Unknown]
  - Anxiety [Unknown]
  - Asthma [Unknown]
  - Pneumonia [Unknown]
  - Chronic obstructive pulmonary disease [Unknown]
  - Cellulitis [Unknown]
  - Back pain [Unknown]
  - Nervous system disorder [Unknown]
  - Blood pressure increased [Unknown]
  - Depression [Unknown]
  - Oedema peripheral [Unknown]
  - Intentional drug misuse [Unknown]
  - Off label use [Unknown]
